FAERS Safety Report 8984006 (Version 1)
Quarter: 2012Q4

REPORT INFORMATION
  Report Type: Spontaneous
  Country: US (occurrence: None)
  Receive Date: 20121218
  Receipt Date: 20121218
  Transmission Date: 20130627
  Serious: Yes (Hospitalization)
  Sender: FDA-Public Use
  Company Number: None

PATIENT
  Age: 33 Year
  Sex: Female
  Weight: 111 kg

DRUGS (7)
  1. LAMOTRIGINE (UNKNOWN) [Suspect]
     Indication: BIPOLAR DISORDER
     Dosage: 25 mg bid po 1-1.5months a admission
     Route: 048
  2. ACETAMINOPHEN 1000 MG PO Q6H PRN ACETAMINOPHEN /OXYCODONE 325/ 5 Q4H PRN. [Concomitant]
  3. AMLODIPINE 2.5 MG PO DAILY, DIPHENHYDRAMINE 50 MG PO TID PRN [Concomitant]
  4. IBUPROFEN 400 MG Q4 PRN [Concomitant]
  5. MAGIC MOUTHWASH 10 MG Q4H [Concomitant]
  6. OMEPRAZOLE 20 MG PO BID [Concomitant]
  7. TRAMADOL 50 MG Q4H PRN [Concomitant]

REACTIONS (7)
  - Rash [None]
  - Stomatitis [None]
  - Dysphagia [None]
  - Conjunctivitis [None]
  - Pyrexia [None]
  - Vaginal infection [None]
  - Oral candidiasis [None]
